FAERS Safety Report 5813218-8 (Version None)
Quarter: 2008Q3

REPORT INFORMATION
  Report Type: 
  Country: None (occurrence: None)
  Receive Date: 20080717
  Receipt Date: 20080502
  Transmission Date: 20090109
  Serious: No
  Sender: FDA-Public Use
  Company Number: A0726002A

PATIENT
  Age: 51 Year
  Sex: Male

DRUGS (1)
  1. NICORETTE [Suspect]
     Dates: start: 20080427, end: 20080428

REACTIONS (2)
  - FEELING ABNORMAL [None]
  - PALPITATIONS [None]
